FAERS Safety Report 6665227-7 (Version None)
Quarter: 2010Q2

REPORT INFORMATION
  Report Type: 
  Country: None (occurrence: None)
  Receive Date: 20100402
  Receipt Date: 20100319
  Transmission Date: 20101027
  Serious: Yes (Death, Hospitalization)
  Sender: FDA-Public Use
  Company Number: ES-ELI_LILLY_AND_COMPANY-ES201003006456

PATIENT
  Sex: Female

DRUGS (9)
  1. FORTEO [Suspect]
     Indication: OSTEOPOROSIS
     Dosage: 20 UG, DAILY (1/D)
     Route: 058
     Dates: start: 20091101, end: 20100316
  2. ARAVA [Concomitant]
     Dosage: UNK, UNKNOWN
     Route: 065
  3. SERETIDE [Concomitant]
     Dosage: UNK, UNKNOWN
     Route: 065
  4. ESPIRONOLACTONA [Concomitant]
     Dosage: UNK, UNKNOWN
     Route: 065
  5. DUPHALAC [Concomitant]
     Dosage: UNK, UNKNOWN
     Route: 065
  6. SPIRIVA [Concomitant]
     Dosage: UNK, UNKNOWN
     Route: 065
  7. PARACETAMOL [Concomitant]
     Dosage: UNK, UNKNOWN
     Route: 065
  8. OMEPRAZOLE [Concomitant]
     Dosage: UNK, UNKNOWN
     Route: 066
  9. PREDNISONA [Concomitant]
     Dosage: UNK, UNKNOWN
     Route: 065

REACTIONS (2)
  - CHRONIC OBSTRUCTIVE PULMONARY DISEASE [None]
  - DEATH [None]
